FAERS Safety Report 17967239 (Version 1)
Quarter: 2020Q2

REPORT INFORMATION
  Report Type: Spontaneous
  Country: US (occurrence: US)
  Receive Date: 20200630
  Receipt Date: 20200630
  Transmission Date: 20200714
  Serious: No
  Sender: FDA-Public Use
  Company Number: None

PATIENT
  Age: 80 Year
  Sex: Female
  Weight: 133.2 kg

DRUGS (2)
  1. PROPOFOL. [Concomitant]
     Active Substance: PROPOFOL
     Dates: start: 20200624, end: 20200626
  2. REMDESIVIR. [Suspect]
     Active Substance: REMDESIVIR
     Indication: COVID-19
     Route: 040
     Dates: start: 20200624, end: 20200628

REACTIONS (4)
  - Blood creatinine increased [None]
  - Sinus bradycardia [None]
  - Glomerular filtration rate increased [None]
  - Renal impairment [None]

NARRATIVE: CASE EVENT DATE: 20200628
